FAERS Safety Report 9786576 (Version 1)
Quarter: 2013Q4

REPORT INFORMATION
  Report Type: Spontaneous
  Country: US (occurrence: US)
  Receive Date: 20131227
  Receipt Date: 20131227
  Transmission Date: 20140711
  Serious: No
  Sender: FDA-Public Use
  Company Number: US-009507513-1312USA008240

PATIENT
  Sex: Female
  Weight: 102.4 kg

DRUGS (2)
  1. NEXPLANON [Suspect]
     Indication: CONTRACEPTION
     Dosage: UNK
     Dates: start: 20130506
  2. TRAZODONE HYDROCHLORIDE [Suspect]
     Indication: AFFECTIVE DISORDER

REACTIONS (3)
  - Unintended pregnancy [Unknown]
  - Abortion spontaneous [Unknown]
  - Implant site pain [Unknown]
